FAERS Safety Report 4906560-6 (Version None)
Quarter: 2006Q1

REPORT INFORMATION
  Report Type: 
  Country: None (occurrence: None)
  Receive Date: 20060209
  Receipt Date: 20051103
  Transmission Date: 20060701
  Serious: Yes (Hospitalization, Other)
  Sender: FDA-Public Use
  Company Number: FR-BRISTOL-MYERS SQUIBB COMPANY-13167275

PATIENT
  Age: 62 Year
  Sex: Male
  Weight: 73 kg

DRUGS (7)
  1. TAXOL [Suspect]
     Indication: LUNG CANCER METASTATIC
  2. CISPLATIN [Suspect]
     Indication: METASTASES TO CENTRAL NERVOUS SYSTEM
     Dates: start: 20050712, end: 20050712
  3. TEMODAL [Suspect]
     Indication: METASTASES TO CENTRAL NERVOUS SYSTEM
     Route: 048
     Dates: start: 20050701, end: 20050716
  4. GEMZAR [Suspect]
     Indication: LUNG NEOPLASM MALIGNANT
     Dates: start: 20050801, end: 20050801
  5. MEDROL [Suspect]
  6. RADIATION THERAPY [Concomitant]
     Indication: METASTASES TO CENTRAL NERVOUS SYSTEM
     Dosage: 3GY X 10 DOSES
     Dates: start: 20050701, end: 20050716
  7. KARDEGIC [Concomitant]
     Dates: end: 20050715

REACTIONS (9)
  - CHEST PAIN [None]
  - HIATUS HERNIA [None]
  - MYOPATHY STEROID [None]
  - OESOPHAGEAL CANDIDIASIS [None]
  - OESOPHAGITIS [None]
  - PANCYTOPENIA [None]
  - THROMBOCYTOPENIA [None]
  - ULCER [None]
  - VENOUS THROMBOSIS [None]
